FAERS Safety Report 9970142 (Version 1)
Quarter: 2014Q1

REPORT INFORMATION
  Report Type: Spontaneous
  Country: US (occurrence: None)
  Receive Date: 20140214
  Receipt Date: 20140214
  Transmission Date: 20141002
  Serious: Yes (Other)
  Sender: FDA-Public Use
  Company Number: CO-OR-US-2013-178

PATIENT
  Age: 40 Year
  Sex: Female

DRUGS (1)
  1. PREDNISOLONE (PREDNISOLONE) [Suspect]

REACTIONS (1)
  - Cushing^s syndrome [None]
